FAERS Safety Report 9716687 (Version 1)
Quarter: 2013Q4

REPORT INFORMATION
  Report Type: Spontaneous
  Country: BR (occurrence: BR)
  Receive Date: 20131127
  Receipt Date: 20131127
  Transmission Date: 20140711
  Serious: Yes (Other)
  Sender: FDA-Public Use
  Company Number: BR-SA-2013SA120550

PATIENT
  Age: 37 Year
  Sex: Female

DRUGS (1)
  1. CLEXANE [Suspect]
     Indication: THROMBOSIS
     Dosage: STERT DATE OF THERAPY- 2 OR 3 YEARS AGO
     Route: 065

REACTIONS (4)
  - Malignant palate neoplasm [Unknown]
  - Benign muscle neoplasm [Unknown]
  - Erythema [Recovering/Resolving]
  - Exposure during pregnancy [Unknown]
